FAERS Safety Report 7001081-1 (Version None)
Quarter: 2010Q3

REPORT INFORMATION
  Report Type: 
  Country: None (occurrence: None)
  Receive Date: 20100920
  Receipt Date: 20100908
  Transmission Date: 20110219
  Serious: Yes (Hospitalization)
  Sender: FDA-Public Use
  Company Number: BR-ROCHE-692083

PATIENT
  Sex: Female
  Weight: 70 kg

DRUGS (5)
  1. BEVACIZUMAB [Suspect]
     Indication: BREAST CANCER
     Dosage: DOSE LEVEL: 15 MG/KG. FORM; VIALS
     Route: 042
     Dates: start: 20100223
  2. TRASTUZUMAB [Suspect]
     Indication: BREAST CANCER
     Dosage: DOSE LEVEL; 8 MG/KG. FORM: VIALS
     Route: 042
     Dates: start: 20100223
  3. DOCETAXEL [Suspect]
     Indication: BREAST CANCER
     Dosage: DOSE LEVEL; 100 MG/M2. FORM: VIALS
     Route: 042
     Dates: start: 20100223
  4. CAPTOPRIL [Concomitant]
     Dosage: FREQUENCY NOT REPORTED
     Dates: start: 20090401
  5. HYDROCHLOROTHIAZIDE [Concomitant]
     Dates: start: 20090401

REACTIONS (2)
  - ACUTE ABDOMEN [None]
  - GASTRIC PERFORATION [None]
